FAERS Safety Report 19902682 (Version 4)
Quarter: 2022Q3

REPORT INFORMATION
  Report Type: Other
  Country: US (occurrence: None)
  Receive Date: 20210930
  Receipt Date: 20220823
  Transmission Date: 20221027
  Serious: Yes (Death, Hospitalization)
  Sender: FDA-Public Use
  Company Number: US-ROCHE-2917627

PATIENT
  Age: 60 Year
  Sex: Male

DRUGS (15)
  1. OCREVUS [Suspect]
     Active Substance: OCRELIZUMAB
     Indication: Relapsing-remitting multiple sclerosis
     Dosage: MOST RECENT DOSE ON 23/APR/2021.
     Route: 042
  2. PFIZER-BIONTECH COVID-19 VACCINE [Concomitant]
     Active Substance: TOZINAMERAN
     Route: 030
     Dates: start: 20210819
  3. LASIX [Concomitant]
     Active Substance: FUROSEMIDE
  4. SPIRONOLACTONE [Concomitant]
     Active Substance: SPIRONOLACTONE
  5. AMIODARONE [Concomitant]
     Active Substance: AMIODARONE
  6. METFORMIN [Concomitant]
     Active Substance: METFORMIN HYDROCHLORIDE
  7. ACETAMINOPHEN [Concomitant]
     Active Substance: ACETAMINOPHEN
  8. DIPHENHYDRAMINE [Concomitant]
     Active Substance: DIPHENHYDRAMINE
     Dosage: 25-50MG
     Route: 048
  9. DIPHENHYDRAMINE [Concomitant]
     Active Substance: DIPHENHYDRAMINE
     Dosage: 25-50 MG
     Route: 042
  10. SOLU-MEDROL [Concomitant]
     Active Substance: METHYLPREDNISOLONE SODIUM SUCCINATE
  11. PEPCID [Concomitant]
     Active Substance: FAMOTIDINE
     Route: 048
  12. MELOXICAM [Concomitant]
     Active Substance: MELOXICAM
     Route: 048
     Dates: start: 20160728
  13. GLATIRAMER ACETATE [Concomitant]
     Active Substance: GLATIRAMER ACETATE
     Dosage: 40 MG/ML
     Dates: start: 20150424
  14. DONEPEZIL [Concomitant]
     Active Substance: DONEPEZIL
     Dosage: MOST RECENT DOSE ON 26/JAN/2014
     Route: 048
     Dates: start: 20130715
  15. BACLOFEN [Concomitant]
     Active Substance: BACLOFEN
     Dosage: 1 PO IN THE MORNING AND HALF TABLETS PO  IN THE EVENING
     Route: 048
     Dates: start: 20200729

REACTIONS (2)
  - Cerebrovascular accident [Recovered/Resolved with Sequelae]
  - COVID-19 [Fatal]

NARRATIVE: CASE EVENT DATE: 20210701
